FAERS Safety Report 21164239 (Version 3)
Quarter: 2023Q1

REPORT INFORMATION
  Report Type: Spontaneous
  Country: ES (occurrence: ES)
  Receive Date: 20220803
  Receipt Date: 20230214
  Transmission Date: 20230418
  Serious: Yes (Life-Threatening, Hospitalization, Other)
  Sender: FDA-Public Use
  Company Number: ES-NOVARTISPH-NVSC2022ES174281

PATIENT
  Age: 77 Year
  Sex: Male

DRUGS (20)
  1. QUETIAPINE [Suspect]
     Active Substance: QUETIAPINE
     Indication: Confusional state
     Dosage: UNK
     Route: 065
  2. OLANZAPINE [Suspect]
     Active Substance: OLANZAPINE
     Indication: Confusional state
     Dosage: UNK
     Route: 065
  3. HALOPERIDOL [Suspect]
     Active Substance: HALOPERIDOL
     Indication: Confusional state
     Dosage: UNK
     Route: 065
  4. CEFTAZIDIME [Suspect]
     Active Substance: CEFTAZIDIME
     Indication: Postoperative wound infection
     Dosage: UNK
     Route: 065
  5. CEFTAZIDIME [Suspect]
     Active Substance: CEFTAZIDIME
     Indication: Device related infection
  6. CLONIDINE [Suspect]
     Active Substance: CLONIDINE
     Indication: Confusional state
     Dosage: UNK
     Route: 065
  7. MORPHINE [Suspect]
     Active Substance: MORPHINE
     Indication: Pain
     Dosage: 4.9 MG, QD
     Route: 037
  8. MORPHINE [Suspect]
     Active Substance: MORPHINE
     Indication: Post laminectomy syndrome
     Dosage: 50 PERCENT OF IM WAS REPLACED WITH 25 PERCENT OF EQUIVALENT DOSE IN CONTINOUS IV INFUSION BY PCA
     Route: 042
  9. MORPHINE [Suspect]
     Active Substance: MORPHINE
     Indication: Analgesic therapy
     Dosage: 50 MG, TID
     Route: 048
  10. MORPHINE [Suspect]
     Active Substance: MORPHINE
     Dosage: 120 MG, Q8H
     Route: 048
  11. MORPHINE [Suspect]
     Active Substance: MORPHINE
     Dosage: MST STARTED IN ASCENDING DOSES
     Route: 048
  12. MORPHINE [Suspect]
     Active Substance: MORPHINE
     Dosage: INCREASED TO 50 PERCENT OF THE DOSE OF MI
     Route: 042
  13. MORPHINE [Suspect]
     Active Substance: MORPHINE
     Dosage: 150 MG, TID
     Route: 048
  14. MORPHINE [Suspect]
     Active Substance: MORPHINE
     Dosage: 8 MG (7.997 MILLIGRAM PER DAY THROUGH INTRATHECAL MORPHINE (MI) PUMP CARRIER)
     Route: 037
  15. MORPHINE [Suspect]
     Active Substance: MORPHINE
     Dosage: 200 MG, Q8H
     Route: 048
  16. MORPHINE [Suspect]
     Active Substance: MORPHINE
     Dosage: 7997 MG, QD MORPHINE (MI) PUMP CARRIER
     Route: 037
  17. MORPHINE [Suspect]
     Active Substance: MORPHINE
     Dosage: UNK (25 PERCENT OF THE EQUIVALENT DOSE OF INTRATHECAL MORPHINE)
     Route: 042
  18. DEXMEDETOMIDINE [Suspect]
     Active Substance: DEXMEDETOMIDINE
     Indication: Confusional state
     Dosage: UNK
     Route: 065
  19. CLOXACILLIN [Suspect]
     Active Substance: CLOXACILLIN
     Indication: Postoperative wound infection
     Dosage: UNK
     Route: 065
  20. CLOXACILLIN [Suspect]
     Active Substance: CLOXACILLIN
     Indication: Device related infection

REACTIONS (11)
  - Respiratory failure [Recovered/Resolved]
  - Drug ineffective [Recovered/Resolved]
  - Somnolence [Recovering/Resolving]
  - Drug withdrawal syndrome [Recovering/Resolving]
  - Haemodynamic instability [Recovered/Resolved]
  - Toxicity to various agents [Recovering/Resolving]
  - Delirium [Recovering/Resolving]
  - Confusional state [Recovering/Resolving]
  - Condition aggravated [Recovered/Resolved]
  - Hypersomnia [Recovered/Resolved]
  - Product use in unapproved indication [Unknown]
